FAERS Safety Report 12630968 (Version 2)
Quarter: 2016Q3

REPORT INFORMATION
  Report Type: Spontaneous
  Country: US (occurrence: US)
  Receive Date: 20160808
  Receipt Date: 20160808
  Transmission Date: 20161109
  Serious: No
  Sender: FDA-Public Use
  Company Number: US-BEH-2015051650

PATIENT
  Sex: Female

DRUGS (1)
  1. HIZENTRA [Suspect]
     Active Substance: HUMAN IMMUNOGLOBULIN G
     Indication: PRODUCT USED FOR UNKNOWN INDICATION
     Dosage: X 7 YRS

REACTIONS (5)
  - Sinusitis [Unknown]
  - Administration site scar [Unknown]
  - Administration site extravasation [Unknown]
  - Erythema [Unknown]
  - Feeling hot [Unknown]
